FAERS Safety Report 17236992 (Version 1)
Quarter: 2020Q1

REPORT INFORMATION
  Report Type: Other
  Country: GB (occurrence: GB)
  Receive Date: 20200106
  Receipt Date: 20200106
  Transmission Date: 20200409
  Serious: Yes (Other)
  Sender: FDA-Public Use
  Company Number: GB-GLENMARK PHARMACEUTICALS-2018GMK037346

PATIENT

DRUGS (7)
  1. PRAMIPEXOLE DIHYDROCHLORIDE. [Suspect]
     Active Substance: PRAMIPEXOLE DIHYDROCHLORIDE
     Dosage: 0.54 MG, OD
     Route: 065
     Dates: end: 20180724
  2. PRAMIPEXOLE DIHYDROCHLORIDE. [Suspect]
     Active Substance: PRAMIPEXOLE DIHYDROCHLORIDE
     Indication: PARKINSON^S DISEASE
     Dosage: 0.26 MG, OD
     Route: 065
     Dates: start: 201804, end: 201804
  3. LEVOTHYROXINE. [Concomitant]
     Active Substance: LEVOTHYROXINE
     Indication: PRODUCT USED FOR UNKNOWN INDICATION
     Dosage: 100 ?G, OD
     Route: 065
     Dates: start: 1987
  4. RASAGILINE. [Concomitant]
     Active Substance: RASAGILINE
     Indication: PARKINSON^S DISEASE
     Dosage: 1 MG, OD
     Route: 065
     Dates: start: 201309
  5. MADOPAR [Concomitant]
     Active Substance: BENSERAZIDE HYDROCHLORIDE\LEVODOPA
     Indication: PRODUCT USED FOR UNKNOWN INDICATION
     Dosage: SLOWLY INCREASING DOSE AS BECOMES LESS EFFECTIVE
     Route: 065
     Dates: start: 2014
  6. FELODIPINE. [Concomitant]
     Active Substance: FELODIPINE
     Indication: HYPERTENSION
     Dosage: 2.5 MG, OD (PROLONGED RELEASE)
     Route: 065
  7. PRAMIPEXOLE DIHYDROCHLORIDE. [Suspect]
     Active Substance: PRAMIPEXOLE DIHYDROCHLORIDE
     Dosage: 1.05 MG, OD
     Route: 065
     Dates: end: 20180724

REACTIONS (13)
  - Tremor [Unknown]
  - Hyperhidrosis [Not Recovered/Not Resolved]
  - Dry eye [Recovered/Resolved]
  - Libido increased [Recovered/Resolved]
  - Impulsive behaviour [Recovered/Resolved]
  - Feeling hot [Not Recovered/Not Resolved]
  - Fall [Recovered/Resolved]
  - Vision blurred [Recovered/Resolved]
  - Restlessness [Not Recovered/Not Resolved]
  - Sticky skin [Not Recovered/Not Resolved]
  - Dry mouth [Recovered/Resolved]
  - Drug withdrawal syndrome [Not Recovered/Not Resolved]
  - Agitation [Not Recovered/Not Resolved]

NARRATIVE: CASE EVENT DATE: 201806
